FAERS Safety Report 16814275 (Version 1)
Quarter: 2019Q3

REPORT INFORMATION
  Report Type: Spontaneous
  Country: US (occurrence: US)
  Receive Date: 20190917
  Receipt Date: 20190917
  Transmission Date: 20191005
  Serious: No
  Sender: FDA-Public Use
  Company Number: US-ALLERGAN-1902462US

PATIENT
  Sex: Female

DRUGS (1)
  1. LINZESS [Suspect]
     Active Substance: LINACLOTIDE
     Indication: IRRITABLE BOWEL SYNDROME
     Dosage: 290 ?G, PRN
     Route: 048
     Dates: start: 2017

REACTIONS (6)
  - Flatulence [Recovering/Resolving]
  - Abdominal pain lower [Recovering/Resolving]
  - Gastritis [Recovering/Resolving]
  - Inappropriate schedule of product administration [Unknown]
  - Abdominal distension [Recovering/Resolving]
  - Abdominal discomfort [Unknown]

NARRATIVE: CASE EVENT DATE: 2018
